FAERS Safety Report 4608131-8 (Version None)
Quarter: 2005Q2

REPORT INFORMATION
  Report Type: 
  Country: None (occurrence: None)
  Receive Date: 20050301
  Receipt Date: 20040330
  Transmission Date: 20051028
  Serious: Yes (Other)
  Sender: FDA-Public Use
  Company Number: BDI-005994

PATIENT
  Age: 10 Year
  Sex: Male

DRUGS (2)
  1. ISOVUE-300 [Suspect]
     Indication: COMPUTERISED TOMOGRAM
     Dosage: 35 ML ONCE IV
     Route: 042
     Dates: start: 20040330, end: 20040330
  2. ISOVUE-300 [Suspect]
     Indication: HEADACHE
     Dosage: 35 ML ONCE IV
     Route: 042
     Dates: start: 20040330, end: 20040330

REACTIONS (4)
  - COUGH [None]
  - DYSPNOEA [None]
  - EYE SWELLING [None]
  - PRURITUS [None]
